FAERS Safety Report 12184121 (Version 1)
Quarter: 2016Q1

REPORT INFORMATION
  Report Type: Report from Study
  Country: CA (occurrence: CA)
  Receive Date: 20160316
  Receipt Date: 20160316
  Transmission Date: 20160526
  Serious: Yes (Hospitalization)
  Sender: FDA-Public Use
  Company Number: CA-BIOGEN-2015BI110499

PATIENT
  Age: 40 Year
  Sex: Female

DRUGS (22)
  1. D TABS [Concomitant]
     Indication: PRODUCT USED FOR UNKNOWN INDICATION
     Dosage: ONCE A DAY EACH SUNDAY
     Route: 048
  2. VENTOLIN [Concomitant]
     Active Substance: ALBUTEROL SULFATE
     Indication: SYMPATHOMIMETIC EFFECT
     Dosage: 100 UP TO 200 MCG 4 TIMES A DAY IF NEEDED
     Route: 048
  3. BACLOFENE [Concomitant]
     Active Substance: BACLOFEN
  4. POLYETHYLENE GLYCOL [Concomitant]
     Active Substance: POLYETHYLENE GLYCOLS
     Indication: PRODUCT USED FOR UNKNOWN INDICATION
     Route: 065
  5. CELEXA [Concomitant]
     Active Substance: CITALOPRAM HYDROBROMIDE
     Indication: ANTIDEPRESSANT THERAPY
     Dosage: BEFORE BREAKFAST
     Route: 048
  6. SYNTHROID [Concomitant]
     Active Substance: LEVOTHYROXINE SODIUM
     Indication: PRODUCT USED FOR UNKNOWN INDICATION
     Dosage: BEFORE BREAKFAST
     Route: 048
  7. VITAMIN C [Concomitant]
     Active Substance: ASCORBIC ACID
     Indication: PRODUCT USED FOR UNKNOWN INDICATION
     Dosage: ONCE A DAY BEFORE BREAKFAST
     Route: 048
  8. LIORESAL [Concomitant]
     Active Substance: BACLOFEN
     Indication: MUSCLE RELAXANT THERAPY
     Dosage: ONCE A DAY BEFORE SLEEP
     Route: 048
  9. LIORESAL [Concomitant]
     Active Substance: BACLOFEN
     Indication: MUSCLE RELAXANT THERAPY
     Route: 048
  10. DETROL [Concomitant]
     Active Substance: TOLTERODINE TARTRATE
     Indication: UROGENITAL DISORDER
     Dosage: 1 TABLET TWICE A DAY, MORNING AND EVENING
     Route: 048
  11. BACLOFENE [Concomitant]
     Active Substance: BACLOFEN
     Indication: PRODUCT USED FOR UNKNOWN INDICATION
     Route: 065
  12. RIVOTRIL [Concomitant]
     Active Substance: CLONAZEPAM
     Indication: PRODUCT USED FOR UNKNOWN INDICATION
     Dosage: AS NEEDED
     Route: 065
  13. TYSABRI [Suspect]
     Active Substance: NATALIZUMAB
     Indication: MULTIPLE SCLEROSIS
     Route: 042
     Dates: start: 20100728, end: 20110126
  14. HARBITROL [Concomitant]
     Indication: AUTONOMIC NERVOUS SYSTEM IMBALANCE
     Dosage: 1 PLASTER APLLIED ONCE A DAY
     Route: 065
     Dates: start: 20141124, end: 20141221
  15. ARIMIPRAZOLE [Concomitant]
     Indication: PRODUCT USED FOR UNKNOWN INDICATION
     Route: 065
  16. CORTATE [Concomitant]
     Active Substance: HYDROCORTISONE
     Indication: MUSCULOSKELETAL DISORDER
     Dosage: 1 APPLICATION TWICE A DAY AS THIN LAYER
     Route: 061
     Dates: start: 20141028, end: 20141103
  17. CORTATE [Concomitant]
     Active Substance: HYDROCORTISONE
     Indication: ANTIINFLAMMATORY THERAPY
  18. HARBITROL [Concomitant]
     Indication: EX-TOBACCO USER
     Dosage: 1 PLASTER APPLIED ONCE A DAY
     Route: 065
     Dates: start: 20141013, end: 20141123
  19. ABILIFY [Concomitant]
     Active Substance: ARIPIPRAZOLE
     Indication: PRODUCT USED FOR UNKNOWN INDICATION
     Route: 048
  20. LAX A DAY [Concomitant]
     Indication: LAXATIVE SUPPORTIVE CARE
     Dosage: 17 GM (CORRESPONDING TO ONE CAP) ONCE A DAY BEFORE BREAKFAST ?DILUTED IN 250 ML OF LIQUID
     Route: 048
  21. TOLTERODINE [Concomitant]
     Active Substance: TOLTERODINE
     Indication: PRODUCT USED FOR UNKNOWN INDICATION
     Route: 065
  22. SALBUTAMOL [Concomitant]
     Active Substance: ALBUTEROL
     Indication: PRODUCT USED FOR UNKNOWN INDICATION
     Route: 065

REACTIONS (1)
  - Ependymoma [Recovered/Resolved]

NARRATIVE: CASE EVENT DATE: 20140808
